FAERS Safety Report 9665077 (Version 1)
Quarter: 2013Q4

REPORT INFORMATION
  Report Type: Spontaneous
  Country: DK (occurrence: DK)
  Receive Date: 20131101
  Receipt Date: 20131101
  Transmission Date: 20140711
  Serious: Yes (Life-Threatening, Hospitalization, Disabling)
  Sender: FDA-Public Use
  Company Number: PHHY2013DK119929

PATIENT
  Age: 78 Year
  Sex: Female
  Weight: 50 kg

DRUGS (1)
  1. METHOTREXATE SANDOZ [Suspect]
     Indication: RHEUMATOID ARTHRITIS
     Dosage: 2.5 MG, QW2
     Route: 048
     Dates: start: 20130704, end: 20130916

REACTIONS (4)
  - General physical health deterioration [Not Recovered/Not Resolved]
  - Interstitial lung disease [Not Recovered/Not Resolved]
  - Visual acuity reduced [Not Recovered/Not Resolved]
  - Hypoxia [Unknown]
